FAERS Safety Report 8777685 (Version 2)
Quarter: 2014Q3

REPORT INFORMATION
  Report Type: Report from Study
  Country: US (occurrence: US)
  Receive Date: 20120911
  Receipt Date: 20140715
  Transmission Date: 20150326
  Serious: Yes (Other)
  Sender: FDA-Public Use
  Company Number: US-JNJFOC-20120902963

PATIENT
  Sex: Female

DRUGS (1)
  1. REMICADE [Suspect]
     Active Substance: INFLIXIMAB
     Indication: CROHN^S DISEASE
     Dosage: ON REMICADE FOR 7 YEARS
     Route: 042

REACTIONS (5)
  - Arthralgia [Unknown]
  - Psoriasis [Unknown]
  - Cyst [Unknown]
  - Exposure during pregnancy [Recovered/Resolved]
  - Fatigue [Unknown]
